FAERS Safety Report 6618965-6 (Version None)
Quarter: 2010Q1

REPORT INFORMATION
  Report Type: 
  Country: None (occurrence: None)
  Receive Date: 20100308
  Receipt Date: 20100226
  Transmission Date: 20100710
  Serious: Yes (Hospitalization, Other)
  Sender: FDA-Public Use
  Company Number: FR-GILEAD-2010-0027390

PATIENT
  Sex: Male

DRUGS (3)
  1. ATRIPLA [Suspect]
     Indication: HIV INFECTION
     Dates: start: 20091101
  2. TRUVADA [Concomitant]
     Indication: HIV INFECTION
  3. SUSTIVA [Concomitant]

REACTIONS (3)
  - MALAISE [None]
  - NECROSIS [None]
  - SKIN EXFOLIATION [None]
